FAERS Safety Report 13925845 (Version 1)
Quarter: 2017Q3

REPORT INFORMATION
  Report Type: Spontaneous
  Country: US (occurrence: US)
  Receive Date: 20170831
  Receipt Date: 20170831
  Transmission Date: 20171127
  Serious: No
  Sender: FDA-Public Use
  Company Number: US-PFIZER INC-2017372635

PATIENT
  Age: 67 Year
  Sex: Female
  Weight: 73 kg

DRUGS (1)
  1. AROMASIN [Suspect]
     Active Substance: EXEMESTANE
     Dosage: UNK
     Dates: end: 20161017

REACTIONS (5)
  - Tumour marker increased [Unknown]
  - Malaise [Unknown]
  - Decreased appetite [Unknown]
  - Neoplasm progression [Unknown]
  - Pyrexia [Unknown]

NARRATIVE: CASE EVENT DATE: 201607
